FAERS Safety Report 16039012 (Version 2)
Quarter: 2019Q1

REPORT INFORMATION
  Report Type: Report from Study
  Country: ES (occurrence: ES)
  Receive Date: 20190306
  Receipt Date: 20190313
  Transmission Date: 20190418
  Serious: Yes (Death)
  Sender: FDA-Public Use
  Company Number: ES-ASTRAZENECA-2019SE36807

PATIENT
  Sex: Male
  Weight: 55 kg

DRUGS (5)
  1. MOVENTIG [Suspect]
     Active Substance: NALOXEGOL OXALATE
     Indication: PRODUCT USED FOR UNKNOWN INDICATION
     Route: 048
     Dates: start: 20180209
  2. OMEPRAZOLE. [Suspect]
     Active Substance: OMEPRAZOLE
     Indication: PRODUCT USED FOR UNKNOWN INDICATION
     Route: 048
     Dates: start: 20180210
  3. LACTULOSE. [Suspect]
     Active Substance: LACTULOSE
     Indication: CONSTIPATION
     Dosage: 30.0MG UNKNOWN
     Route: 065
     Dates: start: 20180123
  4. OXYCODONE [Concomitant]
     Active Substance: OXYCODONE
  5. FENTANYL. [Concomitant]
     Active Substance: FENTANYL

REACTIONS (1)
  - Disease progression [Fatal]
